FAERS Safety Report 8521697 (Version 2)
Quarter: 2013Q2

REPORT INFORMATION
  Report Type: Report from Study
  Country: MX (occurrence: MX)
  Receive Date: 20120419
  Receipt Date: 20130624
  Transmission Date: 20140414
  Serious: No
  Sender: FDA-Public Use
  Company Number: PHHY2012MX031590

PATIENT
  Age: 78 Year
  Sex: Female

DRUGS (4)
  1. EXELON PATCH [Suspect]
     Indication: DEMENTIA ALZHEIMER^S TYPE
     Dosage: 9.5 MG, DAILY
     Route: 062
     Dates: start: 201202, end: 201205
  2. ADALAT OROS [Concomitant]
     Indication: HYPERTENSION
     Dosage: 1 DF, DAILY
     Dates: start: 201106, end: 20120912
  3. CAPTOPRIL [Concomitant]
     Indication: HYPERTENSION
     Dosage: 1 DF, DAILY
     Dates: start: 201106, end: 20120902
  4. CO-DIOVAN [Concomitant]
     Indication: HYPERTENSION
     Dosage: 1 DF(320MG / 25MG), DAILY
     Route: 048
     Dates: start: 201106, end: 20120912

REACTIONS (1)
  - Drug ineffective [Unknown]
